FAERS Safety Report 4694989-3 (Version None)
Quarter: 2005Q2

REPORT INFORMATION
  Report Type: 
  Country: None (occurrence: None)
  Receive Date: 20050617
  Receipt Date: 20050602
  Transmission Date: 20051028
  Serious: Yes (Hospitalization)
  Sender: FDA-Public Use
  Company Number: 2005BI010849

PATIENT
  Age: 51 Year
  Sex: Female
  Weight: 114 kg

DRUGS (5)
  1. NATALIZUMAB (NATALIZUMAB) [Suspect]
     Indication: MULTIPLE SCLEROSIS
     Dosage: 300 MG; QM; IV
     Route: 042
     Dates: start: 20040913, end: 20050131
  2. DETROL [Concomitant]
  3. ASPIRIN [Concomitant]
  4. FUCIDINE CAP [Concomitant]
  5. NAPROXEN [Concomitant]

REACTIONS (1)
  - ENDOMETRIAL CANCER [None]
